FAERS Safety Report 7210815-2 (Version None)
Quarter: 2011Q1

REPORT INFORMATION
  Report Type: 
  Country: None (occurrence: None)
  Receive Date: 20110105
  Receipt Date: 20101213
  Transmission Date: 20110831
  Serious: No
  Sender: FDA-Public Use
  Company Number: US-B.I. PHARMACEUTICALS,INC./RIDGEFIELD-2010-BP-14475BP

PATIENT
  Sex: Female

DRUGS (11)
  1. AMOX TR-K C/V [Suspect]
     Indication: PNEUMONIA
  2. FUROSEMIDE [Concomitant]
     Indication: FLUID RETENTION
  3. QUINAPRIL [Concomitant]
     Indication: HYPERTENSION
  4. METOPROLOL TARTRATE [Concomitant]
     Indication: HYPERTENSION
  5. LEVOXYL [Concomitant]
     Indication: HYPOTHYROIDISM
  6. VITAMIN D [Concomitant]
     Indication: PROPHYLAXIS
  7. PRADAXA [Suspect]
     Indication: ATRIAL FIBRILLATION
     Dosage: 300 MG
     Route: 048
     Dates: start: 20101101
  8. ACETAMINOPHEN [Concomitant]
     Indication: ARTHRALGIA
  9. AMLODIPINE [Concomitant]
     Indication: HYPERTENSION
  10. PRAVASTATIN [Concomitant]
     Indication: BLOOD CHOLESTEROL INCREASED
  11. POTASSIUM [Concomitant]
     Indication: PROPHYLAXIS

REACTIONS (1)
  - GLOSSODYNIA [None]
